FAERS Safety Report 13416742 (Version 9)
Quarter: 2018Q1

REPORT INFORMATION
  Report Type: Report from Study
  Country: DE (occurrence: DE)
  Receive Date: 20170406
  Receipt Date: 20180109
  Transmission Date: 20180508
  Serious: Yes (Death, Hospitalization)
  Sender: FDA-Public Use
  Company Number: DE-CELGENEUS-DEU-2017039877

PATIENT
  Age: 67 Year
  Sex: Male

DRUGS (31)
  1. ABRAXANE [Suspect]
     Active Substance: PACLITAXEL
     Indication: NON-SMALL CELL LUNG CANCER
     Dosage: 100 MILLIGRAM/SQ. METER
     Route: 041
     Dates: start: 20170302
  2. ATEZOLIZUMAB. [Suspect]
     Active Substance: ATEZOLIZUMAB
     Indication: NON-SMALL CELL LUNG CANCER
     Dosage: 1200 MILLIGRAM
     Route: 041
     Dates: start: 20170302, end: 20170302
  3. CARBOPLATIN. [Suspect]
     Active Substance: CARBOPLATIN
     Indication: NON-SMALL CELL LUNG CANCER
     Dosage: 540 MILLIGRAM
     Route: 041
     Dates: start: 20170302
  4. ZOLEDRON [Concomitant]
     Active Substance: ZOLEDRONIC ACID
     Indication: METASTASES TO BONE
     Route: 065
     Dates: start: 20161126
  5. ZOPICLONE [Concomitant]
     Active Substance: ZOPICLONE
     Route: 065
     Dates: start: 20170323, end: 20170323
  6. VITAMIN B12 [Concomitant]
     Active Substance: CYANOCOBALAMIN
     Indication: ANAEMIA VITAMIN B12 DEFICIENCY
     Route: 065
     Dates: start: 20170301
  7. AMPHOTERICIN B. [Concomitant]
     Active Substance: AMPHOTERICIN B
     Indication: MUCOSAL INFLAMMATION
     Route: 065
  8. GRANISETRON [Concomitant]
     Active Substance: GRANISETRON
     Indication: PREMEDICATION
     Route: 065
     Dates: start: 20170302, end: 20170302
  9. GRANISETRON [Concomitant]
     Active Substance: GRANISETRON
     Route: 065
     Dates: start: 20170316, end: 20170316
  10. KALIUM [Concomitant]
     Active Substance: POTASSIUM CHLORIDE
     Indication: HYPOKALAEMIA
     Route: 065
  11. BALDRIAN [Concomitant]
     Indication: SLEEP DISORDER
     Route: 065
     Dates: start: 20170227, end: 20170227
  12. ZOPICLONE [Concomitant]
     Active Substance: ZOPICLONE
     Indication: SLEEP DISORDER
     Route: 065
     Dates: start: 20170228, end: 20170301
  13. IDEOS [Concomitant]
     Active Substance: CALCIUM CARBONATE\CHOLECALCIFEROL
     Indication: METASTASES TO BONE
     Route: 065
     Dates: start: 2016
  14. PANTOPRAZOLE [Concomitant]
     Active Substance: PANTOPRAZOLE
     Indication: GASTRIC ULCER
     Route: 065
  15. PREGABALIN. [Concomitant]
     Active Substance: PREGABALIN
     Indication: CANCER PAIN
     Route: 065
  16. HYDROMORPHONE [Concomitant]
     Active Substance: HYDROMORPHONE
     Indication: CANCER PAIN
     Route: 065
  17. CLEXANE [Concomitant]
     Active Substance: ENOXAPARIN SODIUM
     Indication: THROMBOSIS
     Route: 065
     Dates: start: 20170227, end: 20170302
  18. CLEXANE [Concomitant]
     Active Substance: ENOXAPARIN SODIUM
     Route: 065
     Dates: start: 20170323, end: 20170326
  19. GRANISETRON [Concomitant]
     Active Substance: GRANISETRON
     Route: 065
     Dates: start: 20170309, end: 20170309
  20. METOCLOPRAMIDE. [Concomitant]
     Active Substance: METOCLOPRAMIDE
     Indication: VOMITING
     Route: 065
     Dates: start: 20170302, end: 20170302
  21. ATROVENT [Concomitant]
     Active Substance: IPRATROPIUM BROMIDE
     Indication: CHRONIC OBSTRUCTIVE PULMONARY DISEASE
     Route: 065
     Dates: start: 20170316
  22. AMITRIPTYLIN [Concomitant]
     Active Substance: AMITRIPTYLINE
     Indication: CANCER PAIN
     Route: 065
  23. FERINJECT [Concomitant]
     Active Substance: FERRIC CARBOXYMALTOSE
     Indication: ANAEMIA VITAMIN B12 DEFICIENCY
     Route: 065
  24. FUROSEMIDE. [Concomitant]
     Active Substance: FUROSEMIDE
     Indication: COR PULMONALE
     Route: 065
  25. AMITRIPTYLIN [Concomitant]
     Active Substance: AMITRIPTYLINE
     Indication: SLEEP DISORDER
     Route: 065
     Dates: start: 20170323
  26. SAROTEN [Concomitant]
     Active Substance: AMITRIPTYLINE
     Indication: PAIN
     Route: 065
     Dates: start: 20170323
  27. FOLIC ACID. [Concomitant]
     Active Substance: FOLIC ACID
     Indication: FOLATE DEFICIENCY
     Route: 065
  28. SULTANOL [Concomitant]
     Active Substance: ALBUTEROL SULFATE
     Indication: CHRONIC OBSTRUCTIVE PULMONARY DISEASE
     Route: 065
     Dates: start: 20170316
  29. MELPERON [Concomitant]
     Active Substance: MELPERONE
     Indication: INSOMNIA
     Route: 065
     Dates: start: 20170324, end: 20170326
  30. LAXANS [Concomitant]
     Indication: CONSTIPATION
     Route: 065
     Dates: start: 20170321
  31. METAMIZOLE [Concomitant]
     Active Substance: METAMIZOLE
     Indication: CANCER PAIN
     Route: 065

REACTIONS (1)
  - Pneumonia [Fatal]

NARRATIVE: CASE EVENT DATE: 20170323
